FAERS Safety Report 25606995 (Version 1)
Quarter: 2025Q3

REPORT INFORMATION
  Report Type: Spontaneous
  Country: CN (occurrence: CN)
  Receive Date: 20250725
  Receipt Date: 20250725
  Transmission Date: 20251021
  Serious: Yes (Hospitalization)
  Sender: COHERUS
  Company Number: CN-SHANGHAI JUNSHI BIOSCIENCES CO., LTD.-CN2025014951

PATIENT

DRUGS (7)
  1. TORIPALIMAB [Suspect]
     Active Substance: TORIPALIMAB
     Indication: Hypopharyngeal neoplasm
     Route: 041
     Dates: start: 20250614, end: 20250614
  2. PACLITAXEL [Suspect]
     Active Substance: PACLITAXEL
     Indication: Hypopharyngeal neoplasm
     Route: 041
     Dates: start: 20250614, end: 20250614
  3. PACLITAXEL [Suspect]
     Active Substance: PACLITAXEL
     Route: 041
     Dates: start: 20250707, end: 20250707
  4. CISPLATIN [Suspect]
     Active Substance: CISPLATIN
     Indication: Hypopharyngeal neoplasm
     Route: 041
     Dates: start: 20250614, end: 20250614
  5. CISPLATIN [Suspect]
     Active Substance: CISPLATIN
     Route: 041
     Dates: start: 20250707, end: 20250707
  6. ERBITUX [Suspect]
     Active Substance: CETUXIMAB
     Indication: Hypopharyngeal neoplasm
     Route: 041
     Dates: start: 20250614, end: 20250614
  7. ERBITUX [Suspect]
     Active Substance: CETUXIMAB
     Route: 041
     Dates: start: 20250707, end: 20250707

REACTIONS (4)
  - Dermatitis exfoliative [Recovering/Resolving]
  - Vision blurred [Recovering/Resolving]
  - Chills [Recovering/Resolving]
  - Hyperpyrexia [Recovering/Resolving]

NARRATIVE: CASE EVENT DATE: 20250707
